FAERS Safety Report 26206026 (Version 1)
Quarter: 2025Q4

REPORT INFORMATION
  Report Type: Report from Study
  Country: AR (occurrence: AR)
  Receive Date: 20251229
  Receipt Date: 20251229
  Transmission Date: 20260117
  Serious: Yes (Death)
  Sender: ASTELLAS
  Company Number: AR-PFIZER INC-PV202500151133

PATIENT
  Age: 84 Year
  Sex: Female

DRUGS (1)
  1. PADCEV [Suspect]
     Active Substance: ENFORTUMAB VEDOTIN-EJFV
     Indication: Transitional cell carcinoma
     Dosage: EVERY 7 DAYS?POWDER FOR SOLUTION FOR INFUSION
     Route: 042
     Dates: start: 20251007

REACTIONS (1)
  - Death [Fatal]

NARRATIVE: CASE EVENT DATE: 20251201
